FAERS Safety Report 22191899 (Version 6)
Quarter: 2024Q3

REPORT INFORMATION
  Report Type: Report from Study
  Country: US (occurrence: US)
  Receive Date: 20230410
  Receipt Date: 20240801
  Transmission Date: 20241017
  Serious: Yes (Other)
  Sender: UCB
  Company Number: US-UCBSA-2023015121

PATIENT
  Sex: Female

DRUGS (7)
  1. FINTEPLA [Suspect]
     Active Substance: FENFLURAMINE
     Indication: Severe myoclonic epilepsy of infancy
     Dosage: 1 MILLILITER, 2X/DAY (BID)
     Dates: start: 20230202
  2. FINTEPLA [Suspect]
     Active Substance: FENFLURAMINE
     Dosage: 1 MILLIGRAM, 2X/DAY (BID)
  3. FINTEPLA [Suspect]
     Active Substance: FENFLURAMINE
     Dosage: 1.5 MILLIGRAM, 2X/DAY (BID)
  4. FINTEPLA [Suspect]
     Active Substance: FENFLURAMINE
     Dosage: 2 ML QAM + 1.5 ML QPM
  5. FINTEPLA [Suspect]
     Active Substance: FENFLURAMINE
     Dosage: 2 ML QAM + 1.5 ML QPM
     Dates: start: 2023
  6. FINTEPLA [Suspect]
     Active Substance: FENFLURAMINE
     Dosage: 1.5 MILLILITER, 3X/DAY (TID)
     Dates: start: 20240511
  7. FINTEPLA [Suspect]
     Active Substance: FENFLURAMINE
     Dosage: 2 ML AM, 0.5 ML AFTERNOON AND 2.5 ML PM

REACTIONS (10)
  - Partial seizures [Recovered/Resolved]
  - Generalised tonic-clonic seizure [Recovered/Resolved]
  - Seizure [Not Recovered/Not Resolved]
  - Diarrhoea [Recovering/Resolving]
  - Hand-foot-and-mouth disease [Recovered/Resolved]
  - Rhinovirus infection [Not Recovered/Not Resolved]
  - Weight decreased [Recovered/Resolved]
  - Product use issue [Unknown]
  - Off label use [Unknown]
  - Somnolence [Not Recovered/Not Resolved]

NARRATIVE: CASE EVENT DATE: 20230101
